FAERS Safety Report 8122077-2 (Version None)
Quarter: 2012Q1

REPORT INFORMATION
  Report Type: 
  Country: None (occurrence: None)
  Receive Date: 20120208
  Receipt Date: 20120203
  Transmission Date: 20120608
  Serious: Yes (Death)
  Sender: FDA-Public Use
  Company Number: US-CELGENEUS-163-21880-12020504

PATIENT
  Sex: Male
  Weight: 79.45 kg

DRUGS (16)
  1. AMLODIPINE [Concomitant]
     Dosage: 2.5 MILLIGRAM
     Route: 065
  2. PRILOSEC [Concomitant]
     Dosage: 20 MILLIGRAM
     Route: 065
  3. BENAZEPRIL HYDROCHLORIDE [Concomitant]
     Dosage: 20 MILLIGRAM
     Route: 065
  4. FOLIC ACID [Concomitant]
     Indication: SUPPLEMENTATION THERAPY
     Dosage: 1 MILLIGRAM
     Route: 065
  5. ASPIRIN [Concomitant]
     Dosage: 325 MILLIGRAM
     Route: 065
  6. POTASSIUM [Concomitant]
     Dosage: 10 MILLIEQUIVALENTS
     Route: 065
  7. METOPROLOL [Concomitant]
     Dosage: 75 MILLIGRAM
     Route: 065
  8. VITAMIN D [Concomitant]
     Indication: SUPPLEMENTATION THERAPY
     Dosage: 50,000 UNITS
     Route: 065
  9. FINASTERIDE [Concomitant]
     Dosage: 5 MILLIGRAM
     Route: 065
  10. SYNTHROID [Concomitant]
     Indication: HYPOTHYROIDISM
     Dosage: 100 MICROGRAM
     Route: 065
  11. FLOMAX [Concomitant]
     Dosage: .4 MILLIGRAM
     Route: 065
  12. GLIMEPIRIDE [Concomitant]
     Dosage: 1 MILLIGRAM
     Route: 065
  13. PREDNISONE [Concomitant]
     Dosage: 20 MILLIGRAM
     Route: 065
  14. REVLIMID [Suspect]
     Indication: MYELOFIBROSIS
     Dosage: 10 MILLIGRAM
     Route: 048
     Dates: start: 20111208, end: 20120101
  15. LASIX [Concomitant]
     Dosage: 20 MILLIGRAM
     Route: 065
  16. PRAVASTATIN [Concomitant]
     Dosage: 80 MILLIGRAM
     Route: 065

REACTIONS (1)
  - DEATH [None]
